FAERS Safety Report 10231988 (Version 1)
Quarter: 2014Q2

REPORT INFORMATION
  Report Type: Report from Study
  Country: JP (occurrence: JP)
  Receive Date: 20140612
  Receipt Date: 20140612
  Transmission Date: 20141212
  Serious: Yes (Death, Life-Threatening, Hospitalization, Other)
  Sender: FDA-Public Use
  Company Number: JP-009507513-1406JPN004720

PATIENT
  Age: 68 Year
  Sex: Male

DRUGS (23)
  1. ZOLINZA CAPSULES 100MG [Suspect]
     Indication: MYCOSIS FUNGOIDES
     Dosage: 400 MG, QD
     Route: 048
     Dates: start: 20130415, end: 20130702
  2. ZOLINZA CAPSULES 100MG [Suspect]
     Dosage: 200 MG, QD
     Route: 048
     Dates: start: 20130703, end: 20130723
  3. ZOLINZA CAPSULES 100MG [Suspect]
     Dosage: 400 MG, QD
     Route: 048
     Dates: start: 20130724, end: 20130903
  4. ZOLINZA CAPSULES 100MG [Suspect]
     Dosage: 300 MG, QD
     Route: 048
     Dates: start: 20130904, end: 20131001
  5. ZOLINZA CAPSULES 100MG [Suspect]
     Dosage: 400 MG, QD
     Route: 048
     Dates: start: 20131002, end: 20131008
  6. ZOLINZA CAPSULES 100MG [Suspect]
     Dosage: 300 MG, QD
     Route: 048
     Dates: start: 20131009, end: 20131015
  7. ZOLINZA CAPSULES 100MG [Suspect]
     Dosage: 200 MG, QD
     Route: 048
     Dates: start: 20131016, end: 20131022
  8. ZOLINZA CAPSULES 100MG [Suspect]
     Dosage: 200 MG, QD
     Route: 048
     Dates: start: 20131028, end: 20131031
  9. ZOLINZA CAPSULES 100MG [Suspect]
     Dosage: 300 MG, QD
     Route: 048
     Dates: start: 20131101, end: 20131102
  10. ZOLINZA CAPSULES 100MG [Suspect]
     Dosage: 400 MG, QD
     Route: 048
     Dates: start: 20131103, end: 20131105
  11. ZOLINZA CAPSULES 100MG [Suspect]
     Dosage: 200 MG, QD
     Route: 048
     Dates: start: 20131114, end: 20140122
  12. ADALAT CR [Concomitant]
     Indication: HYPERTENSION
     Dosage: 20 MG, BID
     Route: 048
     Dates: start: 20130415
  13. ADALAT CR [Concomitant]
     Dosage: 20 MG, QD
     Route: 048
     Dates: end: 20140121
  14. URALYT U [Concomitant]
     Indication: TUMOUR LYSIS SYNDROME
     Dosage: 0.5 G, QD
     Route: 048
     Dates: start: 20130415, end: 20140121
  15. AVAPRO [Concomitant]
     Indication: HYPERTENSION
     Dosage: 100 MG, QD
     Route: 048
     Dates: start: 20130415
  16. ALESION [Concomitant]
     Indication: PRURITUS
     Dosage: 20 MG, QD
     Route: 048
     Dates: start: 20130415
  17. BAKTAR [Concomitant]
     Indication: INFECTION PROPHYLAXIS
     Dosage: 1 DOSAGE, QD
     Route: 048
     Dates: start: 20130415
  18. FEBURIC [Concomitant]
     Indication: TUMOUR LYSIS SYNDROME
     Dosage: 40 MG, QD
     Route: 048
     Dates: start: 20130415, end: 20140121
  19. BONALON [Concomitant]
     Indication: OSTEOPOROSIS PROPHYLAXIS
     Dosage: 35 MG, QW
     Route: 048
     Dates: start: 20130415, end: 20140116
  20. PREDONINE [Concomitant]
     Indication: MYCOSIS FUNGOIDES
     Dosage: 10 MG, QD
     Route: 048
     Dates: start: 20130415, end: 20130723
  21. PREDONINE [Concomitant]
     Dosage: 20 MG, QD
     Route: 048
     Dates: start: 20130724, end: 20131102
  22. PROMAC (POLAPREZINC) [Concomitant]
     Indication: GASTRITIS PROPHYLAXIS
     Dosage: 75 MG, BID
     Route: 048
     Dates: start: 20130613, end: 20140121
  23. KALIMATE [Concomitant]
     Indication: HYPERKALAEMIA
     Dosage: 10 G, BID
     Route: 048
     Dates: start: 20130613, end: 20130628

REACTIONS (7)
  - Death [Fatal]
  - Blood creatine increased [Recovering/Resolving]
  - Gastrointestinal haemorrhage [Recovering/Resolving]
  - Platelet count decreased [Recovered/Resolved]
  - Renal impairment [Recovered/Resolved]
  - Blood creatinine increased [Recovered/Resolved]
  - Platelet count decreased [Recovered/Resolved]
